FAERS Safety Report 21707300 (Version 8)
Quarter: 2023Q4

REPORT INFORMATION
  Report Type: Report from Study
  Country: CA (occurrence: CA)
  Receive Date: 20221209
  Receipt Date: 20231103
  Transmission Date: 20240110
  Serious: Yes (Other)
  Sender: FDA-Public Use
  Company Number: CA-ABBVIE-4229316

PATIENT
  Age: 44 Year
  Sex: Male
  Weight: 90.3 kg

DRUGS (21)
  1. UPADACITINIB [Suspect]
     Active Substance: UPADACITINIB
     Indication: Dermatitis atopic
     Route: 048
     Dates: start: 20220404, end: 20221124
  2. DESONIDE [Concomitant]
     Active Substance: DESONIDE
     Indication: Dermatitis atopic
     Dosage: 1 APPLICATION
     Route: 061
     Dates: start: 20220209
  3. DESONIDE [Concomitant]
     Active Substance: DESONIDE
     Indication: Dermatitis atopic
     Dosage: 1 APPLICATION
     Route: 061
     Dates: start: 20220829, end: 20230206
  4. DERMA-SMOOTHE/FS [Concomitant]
     Active Substance: FLUOCINOLONE ACETONIDE
     Indication: Dermatitis atopic
     Route: 061
     Dates: start: 20220209
  5. TOBRADEX [Concomitant]
     Active Substance: DEXAMETHASONE\TOBRAMYCIN
     Indication: Chalazion
     Route: 047
     Dates: start: 20220716, end: 20221015
  6. SYSTANE (HYPROMELLOSE 2910 (4000 MPA.S)) [Concomitant]
     Active Substance: HYPROMELLOSE 2910 (4000 MPA.S)
     Indication: Chalazion
     Dosage: 1 APPLICATION?LID WIPES
     Route: 061
     Dates: start: 20220716
  7. FUCIDIN [Concomitant]
     Active Substance: FUSIDATE SODIUM
     Indication: Impetigo
     Dosage: 1 APPLICATION
     Route: 061
     Dates: start: 20220727, end: 20230211
  8. PREDNISONE [Concomitant]
     Active Substance: PREDNISONE
     Indication: Impetigo
     Route: 048
     Dates: start: 20221028, end: 20221101
  9. PREDNISONE [Concomitant]
     Active Substance: PREDNISONE
     Indication: Impetigo
     Route: 048
     Dates: start: 20221102
  10. PREDNISONE [Concomitant]
     Active Substance: PREDNISONE
     Indication: Impetigo
     Route: 048
     Dates: start: 20221212, end: 202301
  11. AMOXICILLIN\CLAVULANATE POTASSIUM [Concomitant]
     Active Substance: AMOXICILLIN\CLAVULANATE POTASSIUM
     Indication: Impetigo
     Dosage: DOSAGE: 1 TABLET
     Route: 048
     Dates: start: 20221028, end: 20221117
  12. ARISTOCORT [Concomitant]
     Active Substance: TRIAMCINOLONE DIACETATE
     Indication: Dermatitis atopic
     Dosage: 1 APPLICATION
     Route: 061
     Dates: start: 202202, end: 202302
  13. CEFADROXIL [Concomitant]
     Active Substance: CEFADROXIL
     Indication: Impetigo
     Route: 048
     Dates: start: 20220928, end: 20221004
  14. ZOPICLONE [Concomitant]
     Active Substance: ZOPICLONE
     Indication: Dermatitis atopic
     Route: 048
     Dates: start: 20221212
  15. EBASTINE [Concomitant]
     Active Substance: EBASTINE
     Indication: Dermatitis atopic
     Route: 048
     Dates: start: 20221220
  16. FOLIC ACID [Concomitant]
     Active Substance: FOLIC ACID
     Indication: Prophylaxis
     Route: 048
     Dates: start: 20221228
  17. CLOBETASOL [Concomitant]
     Active Substance: CLOBETASOL
     Indication: Dermatitis atopic
     Dosage: 0.05%?1 APPLICATION
     Route: 061
     Dates: start: 20230109
  18. DOXEPIN [Concomitant]
     Active Substance: DOXEPIN
     Indication: Dermatitis atopic
     Route: 048
     Dates: start: 20230109, end: 202302
  19. AQUAPHOR [Concomitant]
     Active Substance: PETROLATUM
     Indication: Dermatitis atopic
     Dosage: 1 APPLICATION
     Dates: start: 20230109
  20. SINEQUAN [Concomitant]
     Active Substance: DOXEPIN HYDROCHLORIDE
     Indication: Dermatitis atopic
     Route: 048
     Dates: start: 20230123, end: 20230206
  21. MELATONIN [Concomitant]
     Active Substance: MELATONIN
     Indication: Dermatitis atopic
     Route: 048
     Dates: start: 20221211

REACTIONS (2)
  - Cutaneous T-cell lymphoma [Not Recovered/Not Resolved]
  - Cutaneous T-cell lymphoma [Not Recovered/Not Resolved]

NARRATIVE: CASE EVENT DATE: 20221104
